FAERS Safety Report 13997433 (Version 1)
Quarter: 2017Q3

REPORT INFORMATION
  Report Type: Spontaneous
  Country: US (occurrence: US)
  Receive Date: 20170921
  Receipt Date: 20170921
  Transmission Date: 20171128
  Serious: No
  Sender: FDA-Public Use
  Company Number: US-BAYER-2017-179852

PATIENT
  Sex: Female

DRUGS (2)
  1. ZEGERID OTC CAPSULES [Concomitant]
     Active Substance: OMEPRAZOLE\SODIUM BICARBONATE
  2. MIRALAX [Suspect]
     Active Substance: POLYETHYLENE GLYCOL 3350
     Indication: PRODUCT USED FOR UNKNOWN INDICATION
     Route: 048

REACTIONS (2)
  - Tongue discomfort [Not Recovered/Not Resolved]
  - Tongue erythema [Not Recovered/Not Resolved]
